FAERS Safety Report 6227006-4 (Version None)
Quarter: 2009Q2

REPORT INFORMATION
  Report Type: 
  Country: None (occurrence: None)
  Receive Date: 20090612
  Receipt Date: 20090609
  Transmission Date: 20091009
  Serious: Yes (Death, Hospitalization, Other)
  Sender: FDA-Public Use
  Company Number: JP-B.I. PHARMACEUTICALS,INC./RIDGEFIELD-2008-BP-04865NB

PATIENT
  Sex: Female

DRUGS (3)
  1. MICARDIS [Suspect]
     Indication: HYPERTENSION
     Dosage: 40MG
     Route: 048
     Dates: start: 20070105, end: 20080213
  2. MEILAX [Concomitant]
     Indication: PALPITATIONS
     Dosage: 1MG
     Route: 048
     Dates: start: 20070528, end: 20080213
  3. MEILAX [Concomitant]
     Indication: ANXIETY

REACTIONS (11)
  - ANGINA PECTORIS [None]
  - ANXIETY [None]
  - DEATH [None]
  - DYSPNOEA EXERTIONAL [None]
  - FALL [None]
  - FATIGUE [None]
  - LOSS OF CONSCIOUSNESS [None]
  - PALPITATIONS [None]
  - SUDDEN DEATH [None]
  - TRANSIENT ISCHAEMIC ATTACK [None]
  - URINARY INCONTINENCE [None]
